FAERS Safety Report 23787527 (Version 3)
Quarter: 2024Q3

REPORT INFORMATION
  Report Type: Spontaneous
  Country: JP (occurrence: JP)
  Receive Date: 20240426
  Receipt Date: 20240716
  Transmission Date: 20241017
  Serious: Yes (Death, Hospitalization, Other)
  Sender: UNITED THERAPEUTICS
  Company Number: JP-UNITED THERAPEUTICS-UNT-2024-012188

PATIENT
  Age: 58 Year
  Sex: Female

DRUGS (2)
  1. TYVASO [Suspect]
     Active Substance: TREPROSTINIL
     Indication: Pulmonary arterial hypertension
     Dosage: 18 ?G, QID
     Dates: start: 20231218
  2. TYVASO [Suspect]
     Active Substance: TREPROSTINIL
     Dosage: UNK (DOSE WAS ADJUSTED FROM THE LOW DOSE)

REACTIONS (5)
  - General physical health deterioration [Fatal]
  - Pulmonary hypertension [Fatal]
  - Interstitial lung disease [Unknown]
  - Pneumothorax [Unknown]
  - Cough [Unknown]
